FAERS Safety Report 5642788-8 (Version None)
Quarter: 2008Q1

REPORT INFORMATION
  Report Type: 
  Country: None (occurrence: None)
  Receive Date: 20080228
  Receipt Date: 20080221
  Transmission Date: 20080703
  Serious: Yes (Life-Threatening, Other)
  Sender: FDA-Public Use
  Company Number: CHWYE451231JAN07

PATIENT
  Age: 37 Year
  Sex: Female
  Weight: 64 kg

DRUGS (7)
  1. EFFEXOR [Suspect]
     Indication: DEPRESSION
     Route: 048
     Dates: start: 20060701
  2. STILNOX [Suspect]
     Indication: SLEEP DISORDER
     Route: 048
  3. PANADOL [Suspect]
     Indication: PAIN
     Dosage: UNSPECIFIED
     Route: 048
  4. MOTILIUM [Suspect]
     Indication: DYSPEPSIA
     Dosage: UNSPECIFIED
     Route: 048
  5. PANTOZOL [Suspect]
     Indication: GASTROOESOPHAGEAL REFLUX DISEASE
     Dosage: UNSPECIFIED
     Route: 048
  6. LEXOTANIL [Suspect]
     Indication: ANXIETY DISORDER
     Route: 048
  7. DICETEL [Suspect]
     Indication: DYSPEPSIA
     Dosage: UNSPECIFIED
     Route: 048

REACTIONS (4)
  - DRUG EXPOSURE DURING PREGNANCY [None]
  - OBSTETRICAL PULMONARY EMBOLISM [None]
  - PRE-ECLAMPSIA [None]
  - UTERINE HAEMORRHAGE [None]
